FAERS Safety Report 9495229 (Version 2)
Quarter: 2013Q3

REPORT INFORMATION
  Report Type: Spontaneous
  Country: US (occurrence: US)
  Receive Date: 20130903
  Receipt Date: 20130925
  Transmission Date: 20140515
  Serious: Yes (Hospitalization, Other)
  Sender: FDA-Public Use
  Company Number: US-PFIZER INC-2013252236

PATIENT
  Age: 73 Year
  Sex: Male
  Weight: 83.9 kg

DRUGS (4)
  1. LIPITOR [Suspect]
     Indication: BLOOD CHOLESTEROL ABNORMAL
     Dosage: 80 MG, 1X/DAY
     Dates: start: 2010, end: 201210
  2. LIPITOR [Suspect]
     Dosage: 80 MG, 1X/DAY
     Dates: start: 2012
  3. ASPIRIN [Concomitant]
     Indication: CARDIAC DISORDER
     Dosage: 81 MG, 1X/DAY
  4. PLAVIX [Concomitant]
     Dosage: UNK

REACTIONS (3)
  - Arterial occlusive disease [Recovered/Resolved]
  - Haemorrhage [Unknown]
  - Hernia [Unknown]
